FAERS Safety Report 5336096-2 (Version None)
Quarter: 2007Q1

REPORT INFORMATION
  Report Type: 
  Country: None (occurrence: None)
  Receive Date: 20070308
  Receipt Date: 20061108
  Transmission Date: 20070707
  Serious: Yes (Other)
  Sender: FDA-Public Use
  Company Number: 2006MP001200

PATIENT
  Age: 77 Year
  Sex: 0

DRUGS (1)
  1. DACOGEN [Suspect]
     Indication: MYELODYSPLASTIC SYNDROME
     Dosage: IV
     Route: 042
     Dates: start: 20060701

REACTIONS (1)
  - BONE MARROW FAILURE [None]
